FAERS Safety Report 10513073 (Version 1)
Quarter: 2014Q4

REPORT INFORMATION
  Report Type: Spontaneous
  Country: VN (occurrence: VN)
  Receive Date: 20141013
  Receipt Date: 20141013
  Transmission Date: 20150528
  Serious: Yes (Death, Other)
  Sender: FDA-Public Use
  Company Number: VN-009507513-1410VNM003723

PATIENT
  Age: 83 Year
  Sex: Female

DRUGS (1)
  1. DIPROSPAN [Suspect]
     Active Substance: BETAMETHASONE DIPROPIONATE\BETAMETHASONE SODIUM PHOSPHATE
     Indication: EPICONDYLITIS
     Dosage: AROUND 0.2 ML, INJECTION INTO RIGHT AND LEFT FEMORAL EPICONDYLES
     Route: 014

REACTIONS (1)
  - Cardiac arrest [Fatal]
